FAERS Safety Report 26017558 (Version 1)
Quarter: 2025Q4

REPORT INFORMATION
  Report Type: Spontaneous
  Country: US (occurrence: US)
  Receive Date: 20251110
  Receipt Date: 20251110
  Transmission Date: 20260117
  Serious: No
  Sender: JOHNSON AND JOHNSON
  Company Number: US-JNJFOC-20251150388

PATIENT

DRUGS (3)
  1. SPRAVATO [Suspect]
     Active Substance: ESKETAMINE
     Indication: Major depression
     Route: 045
  2. SPRAVATO [Suspect]
     Active Substance: ESKETAMINE
     Indication: Anxiety
  3. SPRAVATO [Suspect]
     Active Substance: ESKETAMINE
     Indication: Borderline personality disorder

REACTIONS (10)
  - Illness [Unknown]
  - Malaise [Unknown]
  - Feeling abnormal [Unknown]
  - Dizziness [Unknown]
  - Pallor [Unknown]
  - Depressed mood [Unknown]
  - Nausea [Unknown]
  - Sedation [Unknown]
  - Euphoric mood [Unknown]
  - Inappropriate schedule of product administration [Unknown]
